FAERS Safety Report 5511418-8 (Version None)
Quarter: 2007Q4

REPORT INFORMATION
  Report Type: 
  Country: None (occurrence: None)
  Receive Date: 20071109
  Receipt Date: 20071030
  Transmission Date: 20080405
  Serious: Yes (Other)
  Sender: FDA-Public Use
  Company Number: US-ROCHE-525419

PATIENT
  Age: 60 Year
  Sex: Female
  Weight: 90.3 kg

DRUGS (8)
  1. CELLCEPT [Suspect]
     Indication: DERMATOMYOSITIS
     Route: 065
     Dates: start: 20071004, end: 20071012
  2. CELLCEPT [Suspect]
     Route: 065
     Dates: start: 20070905, end: 20070915
  3. FISH OIL [Concomitant]
  4. TYLENOL (CAPLET) [Concomitant]
  5. LOVENOX [Concomitant]
  6. MEDROL [Concomitant]
  7. M.V.I. [Concomitant]
     Dosage: REPORTED AS MVI WITH CALCIUM
  8. CALCIUM/VITAMIN D [Concomitant]
     Dosage: REPORTED AS CALCIUM 600 MG + D

REACTIONS (7)
  - ASTHENIA [None]
  - HEADACHE [None]
  - PAIN [None]
  - POLLAKIURIA [None]
  - RASH [None]
  - SLEEP DISORDER [None]
  - UNEVALUABLE EVENT [None]
